FAERS Safety Report 7859263-2 (Version None)
Quarter: 2011Q4

REPORT INFORMATION
  Report Type: 
  Country: None (occurrence: None)
  Receive Date: 20111027
  Receipt Date: 20111027
  Transmission Date: 20120403
  Serious: Yes (Other)
  Sender: FDA-Public Use
  Company Number: None

PATIENT
  Age: 47 Year
  Sex: Male
  Weight: 71.667 kg

DRUGS (1)
  1. DEXFERRUM [Suspect]
     Indication: IRON DEFICIENCY
     Dosage: 25 MG
     Route: 042
     Dates: start: 20111014, end: 20111014

REACTIONS (3)
  - HYPOTENSION [None]
  - INFUSION RELATED REACTION [None]
  - UNRESPONSIVE TO STIMULI [None]
